FAERS Safety Report 15016328 (Version 3)
Quarter: 2018Q3

REPORT INFORMATION
  Report Type: Spontaneous
  Country: GB (occurrence: GB)
  Receive Date: 20180615
  Receipt Date: 20180907
  Transmission Date: 20181010
  Serious: Yes (Other)
  Sender: FDA-Public Use
  Company Number: GB-AMGEN-GBRCT2018078752

PATIENT
  Age: 73 Year
  Sex: Female

DRUGS (13)
  1. PARACETAMOL [Concomitant]
     Active Substance: ACETAMINOPHEN
     Indication: PRODUCT USED FOR UNKNOWN INDICATION
     Dosage: UNK
  2. RANITIDINE. [Concomitant]
     Active Substance: RANITIDINE
     Indication: PRODUCT USED FOR UNKNOWN INDICATION
     Dosage: UNK
  3. CODEINE [Concomitant]
     Active Substance: CODEINE
     Indication: PRODUCT USED FOR UNKNOWN INDICATION
     Dosage: UNK UNK, AS NECESSARY
  4. COCODAMOL [Concomitant]
     Active Substance: ACETAMINOPHEN\CODEINE PHOSPHATE
     Indication: ANALGESIC THERAPY
     Dosage: UNK
  5. VITAMIN D3 [Concomitant]
     Active Substance: CHOLECALCIFEROL
     Indication: PRODUCT USED FOR UNKNOWN INDICATION
     Dosage: UNK
  6. TERIPARATIDE [Suspect]
     Active Substance: TERIPARATIDE
     Dosage: 20 MCG, QD
     Route: 058
     Dates: start: 20180606
  7. NAPROXEN. [Concomitant]
     Active Substance: NAPROXEN
     Indication: PRODUCT USED FOR UNKNOWN INDICATION
     Dosage: UNK, AS NECESSARY
  8. TERIPARATIDE [Suspect]
     Active Substance: TERIPARATIDE
     Dosage: 20 MCG, QD
     Route: 058
     Dates: start: 20170606
  9. TERIPARATIDE [Suspect]
     Active Substance: TERIPARATIDE
     Dosage: 20 MCG, QD
     Route: 058
     Dates: start: 20170712, end: 20180514
  10. FOLIC ACID. [Concomitant]
     Active Substance: FOLIC ACID
     Indication: PRODUCT USED FOR UNKNOWN INDICATION
  11. TERIPARATIDE [Suspect]
     Active Substance: TERIPARATIDE
     Indication: OSTEOPOROSIS
     Dosage: 20 MCG, QD
     Route: 058
  12. FERROUS FUMARATE [Concomitant]
     Active Substance: FERROUS FUMARATE
     Indication: MINERAL SUPPLEMENTATION
  13. PROLIA [Suspect]
     Active Substance: DENOSUMAB
     Indication: PRODUCT USED FOR UNKNOWN INDICATION
     Dosage: UNK
     Route: 065

REACTIONS (10)
  - Mobility decreased [Not Recovered/Not Resolved]
  - Gait disturbance [Not Recovered/Not Resolved]
  - Musculoskeletal stiffness [Unknown]
  - Diverticulitis [Unknown]
  - Intestinal haemorrhage [Not Recovered/Not Resolved]
  - Anaemia [Unknown]
  - Back pain [Not Recovered/Not Resolved]
  - Abdominal pain upper [Not Recovered/Not Resolved]
  - Muscle spasms [Unknown]
  - Lumbar vertebral fracture [Unknown]

NARRATIVE: CASE EVENT DATE: 201802
